FAERS Safety Report 4586399-4 (Version None)
Quarter: 2005Q1

REPORT INFORMATION
  Report Type: 
  Country: None (occurrence: None)
  Receive Date: 20050125
  Receipt Date: 20041122
  Transmission Date: 20050727
  Serious: No
  Sender: FDA-Public Use
  Company Number: USA040876939

PATIENT
  Age: 73 Year
  Sex: Female
  Weight: 55 kg

DRUGS (4)
  1. FORTEO [Suspect]
     Indication: OSTEOPOROSIS
     Dosage: 20 UG DAY
     Dates: start: 20040826
  2. ALLEGRA [Concomitant]
  3. TUMS (CALCIUM CARBONATE) [Concomitant]
  4. CALCIUM GLUCONATE [Concomitant]

REACTIONS (12)
  - ABDOMINAL PAIN [None]
  - ASTHENIA [None]
  - BACK PAIN [None]
  - BLOOD ALKALINE PHOSPHATASE INCREASED [None]
  - BLOOD CALCIUM INCREASED [None]
  - DIZZINESS [None]
  - DYSURIA [None]
  - INJECTION SITE HAEMORRHAGE [None]
  - LIMB DISCOMFORT [None]
  - MUSCLE SPASMS [None]
  - POLLAKIURIA [None]
  - THIRST [None]
